FAERS Safety Report 18409035 (Version 1)
Quarter: 2020Q4

REPORT INFORMATION
  Report Type: Spontaneous
  Country: DE (occurrence: DE)
  Receive Date: 20201021
  Receipt Date: 20201021
  Transmission Date: 20210114
  Serious: Yes (Death, Hospitalization, Other)
  Sender: FDA-Public Use
  Company Number: DE-GILEAD-2020-0500264

PATIENT
  Age: 71 Year
  Sex: Female

DRUGS (1)
  1. AMBRISENTAN [Suspect]
     Active Substance: AMBRISENTAN
     Indication: PRODUCT USED FOR UNKNOWN INDICATION
     Dosage: 5 MG, QD
     Route: 065

REACTIONS (9)
  - Sepsis [Unknown]
  - Body mass index increased [Unknown]
  - Surgery [Unknown]
  - Obesity [Unknown]
  - Diabetic foot [Unknown]
  - Impaired healing [Unknown]
  - C-reactive protein increased [Unknown]
  - Death [Fatal]
  - Dyspnoea [Unknown]
